FAERS Safety Report 5444061-X (Version None)
Quarter: 2007Q3

REPORT INFORMATION
  Report Type: 
  Country: None (occurrence: None)
  Receive Date: 20070831
  Receipt Date: 20070818
  Transmission Date: 20080115
  Serious: Yes (Hospitalization)
  Sender: FDA-Public Use
  Company Number: SPV1-2007-03915

PATIENT
  Age: 17 Month
  Sex: Female
  Weight: 9.1 kg

DRUGS (1)
  1. ADDERALL 10 [Suspect]
     Dosage: 20 MG, ONE DOSE, ORAL
     Route: 048
     Dates: start: 20070807, end: 20070807

REACTIONS (8)
  - ABDOMINAL PAIN [None]
  - ACCIDENTAL EXPOSURE [None]
  - DROOLING [None]
  - HEART RATE INCREASED [None]
  - INSOMNIA [None]
  - LETHARGY [None]
  - POSTURE ABNORMAL [None]
  - STEREOTYPY [None]
